FAERS Safety Report 16831597 (Version 1)
Quarter: 2019Q3

REPORT INFORMATION
  Report Type: Spontaneous
  Country: IS (occurrence: IS)
  Receive Date: 20190920
  Receipt Date: 20190920
  Transmission Date: 20191005
  Serious: Yes (Disabling, Other)
  Sender: FDA-Public Use
  Company Number: IS-GLAXOSMITHKLINE-IS2019169510

PATIENT
  Age: 32 Year
  Sex: Male
  Weight: 87 kg

DRUGS (5)
  1. DAREN (ENALAPRIL MALEATE) [Concomitant]
     Indication: PRODUCT USED FOR UNKNOWN INDICATION
     Dosage: 15 MG PER DAY
     Route: 065
     Dates: start: 2017
  2. FEXOFENADINE [Concomitant]
     Active Substance: FEXOFENADINE HYDROCHLORIDE
     Indication: PRODUCT USED FOR UNKNOWN INDICATION
     Dosage: 1 PER DAY 180 MG/M3
     Route: 065
     Dates: start: 2010
  3. AVAMYS [Suspect]
     Active Substance: FLUTICASONE FUROATE
     Indication: SEASONAL ALLERGY
     Dosage: 1 SPRAY INTO EACH NOSTRIL PER DAYTHE PATIENT USED THE DRUG DURING SPRING, SUMMER AND FALL MONTS.
     Route: 045
     Dates: end: 20190830
  4. AVAMYS [Suspect]
     Active Substance: FLUTICASONE FUROATE
     Dosage: UNK
     Route: 065
  5. ZADITEN [Concomitant]
     Active Substance: KETOTIFEN FUMARATE
     Indication: PRODUCT USED FOR UNKNOWN INDICATION
     Dosage: 1 DROP INTO EACH EYE EVERY DAY
     Route: 065

REACTIONS (4)
  - Night blindness [Not Recovered/Not Resolved]
  - Dyschromatopsia [Not Recovered/Not Resolved]
  - Chorioretinopathy [Not Recovered/Not Resolved]
  - Visual impairment [Not Recovered/Not Resolved]

NARRATIVE: CASE EVENT DATE: 20160701
